FAERS Safety Report 9236167 (Version 2)
Quarter: 2013Q2

REPORT INFORMATION
  Report Type: Spontaneous
  Country: US (occurrence: US)
  Receive Date: 20130417
  Receipt Date: 20130507
  Transmission Date: 20140414
  Serious: Yes (Other)
  Sender: FDA-Public Use
  Company Number: US-PFIZER INC-2013121112

PATIENT
  Age: 79 Year
  Sex: Male

DRUGS (26)
  1. LYRICA [Suspect]
     Indication: ARTHRITIS
     Dosage: 100 MG (2X50MG), 3X/DAY
     Route: 048
  2. LYRICA [Suspect]
     Indication: NEUROPATHY PERIPHERAL
  3. TENORMIN [Concomitant]
     Indication: CARDIAC DISORDER
     Dosage: 50 MG, 1X/DAY
  4. LEVOTHYROXINE [Concomitant]
     Indication: THYROID DISORDER
     Dosage: 0.1 MG, 1X/DAY (2 HR BEFORE OR 1 HR AFTER EAT)
  5. PREVACID [Concomitant]
     Indication: ABDOMINAL DISCOMFORT
     Dosage: 15 MG, 1X/DAY
  6. OXYBUTYNIN [Concomitant]
     Indication: BLADDER DISORDER
     Dosage: 15 MG ER, 1X/DAY
  7. PLAVIX [Concomitant]
     Indication: CARDIAC DISORDER
     Dosage: 75 MG, 1X/DAY
  8. MOBIC [Concomitant]
     Indication: ARTHRITIS
     Dosage: 15 MG, 1X/DAY
  9. FISH OIL [Concomitant]
     Dosage: 1000 MG, 1X/DAY
  10. STOOL SOFTENER [Concomitant]
     Dosage: 2 DF, 1X/DAY
  11. ZOCOR [Concomitant]
     Indication: CARDIAC DISORDER
     Dosage: 40 MG, 1X/DAY
  12. PROSCAR [Concomitant]
     Indication: PROSTATIC DISORDER
     Dosage: 5 MG, 1X/DAY
  13. LISINOPRIL [Concomitant]
     Indication: LIVER DISORDER
     Dosage: 5 MG, 1X/DAY
  14. TERAZOSIN [Concomitant]
     Indication: PROSTATIC DISORDER
     Dosage: 10 MG, 1X/DAY
  15. ASPIRIN [Concomitant]
     Indication: CARDIAC DISORDER
     Dosage: 325 MG, 1X/DAY
  16. MULTIVITAMINS [Concomitant]
     Dosage: 1 DF, 1X/DAY
  17. TRAZODONE [Concomitant]
     Dosage: 50 MG, 1X/DAY
  18. NOVOLOG [Concomitant]
     Dosage: 10-20 UNITS BEFORE BREAKFAST; 10-20 UNITS BEFORE LUNCH; UP TO 60 UNITS BEFORE DINNER
  19. NOVOLOG [Concomitant]
     Dosage: AS NEEDED AT BEDTIME
  20. LANTUS [Concomitant]
     Dosage: 53 UNITS BEFORE BREAKFAST; 63 UNITS AT BEDTIME
  21. ALENDRONATE [Concomitant]
     Indication: BONE DISORDER
     Dosage: 70 MG, WEEKLY
  22. VITAMIN D [Concomitant]
     Indication: ROUTINE HEALTH MAINTENANCE
     Dosage: 50000 IU, WEEKLY
  23. VICOPROFEN [Concomitant]
     Indication: PAIN
     Dosage: 7.5-200 MG, EVERY 6 HOURS AS NEEDED
  24. GLYCOLAX [Concomitant]
     Indication: ABDOMINAL DISCOMFORT
     Dosage: 17 G, 1X/DAY
  25. FLUTICASONE PROPIONATE [Concomitant]
     Dosage: UNK, 2X/DAY
  26. CALCIUM CITRATE + D3 [Concomitant]
     Dosage: UNK, 2 PER DAY (MORNING, EVENING)

REACTIONS (2)
  - Cataract [Unknown]
  - Eye operation complication [Unknown]
